FAERS Safety Report 9008038 (Version 2)
Quarter: 2013Q1

REPORT INFORMATION
  Report Type: Spontaneous
  Country: US (occurrence: US)
  Receive Date: 20130110
  Receipt Date: 20130122
  Transmission Date: 20140127
  Serious: No
  Sender: FDA-Public Use
  Company Number: US-009507513-1301USA001282

PATIENT
  Age: 31 Year
  Sex: Female

DRUGS (3)
  1. NUVARING [Suspect]
     Indication: CONTRACEPTION
     Dosage: 1 RING FOR 3 WEEK USE
     Dates: start: 2000
  2. CYANOCOBALAMIN [Concomitant]
  3. SYNTHROID [Concomitant]

REACTIONS (1)
  - Vaginal infection [Unknown]
